FAERS Safety Report 10934160 (Version 3)
Quarter: 2019Q3

REPORT INFORMATION
  Report Type: Spontaneous
  Country: CA (occurrence: CA)
  Receive Date: 20150320
  Receipt Date: 20190809
  Transmission Date: 20191004
  Serious: Yes (Other)
  Sender: FDA-Public Use
  Company Number: CA-AMGEN-CANSP2015025772

PATIENT
  Age: 65 Year
  Sex: Female

DRUGS (4)
  1. ZONA [Suspect]
     Active Substance: HYDROCORTISONE BUTYRATE
     Indication: PRODUCT USED FOR UNKNOWN INDICATION
     Dosage: UNK
     Route: 065
     Dates: start: 20150420
  2. LEFLUNOMIDE. [Suspect]
     Active Substance: LEFLUNOMIDE
     Indication: PRODUCT USED FOR UNKNOWN INDICATION
     Dosage: 20 MG, DIE
     Route: 065
     Dates: start: 201203, end: 201206
  3. METHOTREXATE. [Suspect]
     Active Substance: METHOTREXATE
     Indication: PRODUCT USED FOR UNKNOWN INDICATION
     Dosage: 15 MILLIGRAM, QWK
     Route: 065
     Dates: start: 201409
  4. ENBREL [Suspect]
     Active Substance: ETANERCEPT
     Indication: PRODUCT USED FOR UNKNOWN INDICATION
     Dosage: 50 MG, QWK
     Route: 058
     Dates: start: 200806, end: 200808

REACTIONS (13)
  - Nausea [Unknown]
  - Drug hypersensitivity [Unknown]
  - Rash erythematous [Unknown]
  - Rash [Unknown]
  - Drug intolerance [Unknown]
  - Dizziness [Unknown]
  - Abdominal pain [Unknown]
  - Hepatic pain [Unknown]
  - Urinary tract infection [Unknown]
  - Skin disorder [Unknown]
  - Fatigue [Unknown]
  - Headache [Unknown]
  - Respiratory distress [Unknown]

NARRATIVE: CASE EVENT DATE: 2008
